FAERS Safety Report 5672761-5 (Version None)
Quarter: 2008Q1

REPORT INFORMATION
  Report Type: 
  Country: None (occurrence: None)
  Receive Date: 20080319
  Receipt Date: 20070716
  Transmission Date: 20080703
  Serious: No
  Sender: FDA-Public Use
  Company Number: US-KINGPHARMUSA00001-K200700899

PATIENT

DRUGS (4)
  1. ALTACE [Suspect]
     Indication: HYPERTENSION
     Dosage: 5 MG, BID
     Route: 048
     Dates: start: 20040101
  2. TOPROL-XL [Concomitant]
     Indication: CARDIAC DISORDER
  3. PRAVASTATIN [Concomitant]
     Indication: BLOOD CHOLESTEROL
  4. WARFARIN SODIUM [Concomitant]
     Indication: BLOOD CHOLESTEROL

REACTIONS (1)
  - HEADACHE [None]
